FAERS Safety Report 5407354-8 (Version None)
Quarter: 2007Q3

REPORT INFORMATION
  Report Type: 
  Country: None (occurrence: None)
  Receive Date: 20070807
  Receipt Date: 20070727
  Transmission Date: 20080115
  Serious: Yes (Hospitalization)
  Sender: FDA-Public Use
  Company Number: AU-AMGEN-US237456

PATIENT
  Age: 76 Year
  Sex: Female
  Weight: 50 kg

DRUGS (10)
  1. ENBREL [Suspect]
     Indication: DRUG USE FOR UNKNOWN INDICATION
     Route: 058
     Dates: end: 20060523
  2. NEXIUM [Suspect]
     Dosage: 20 MG DAILY
     Route: 048
     Dates: end: 20060523
  3. PROVERA [Concomitant]
     Route: 065
  4. IMIPRAMINE HYDROCHLORIDE [Concomitant]
     Route: 065
  5. COLOXYL WITH SENNA [Concomitant]
     Route: 065
  6. PLAQUENIL [Concomitant]
     Route: 065
  7. LEVOTHYROXINE SODIUM [Concomitant]
     Route: 065
  8. FOLIC ACID [Concomitant]
     Route: 065
  9. ESTRADIOL VALERATE [Concomitant]
     Route: 065
  10. CALCITRIOL [Concomitant]
     Route: 065

REACTIONS (4)
  - LETHARGY [None]
  - NEPHRITIS INTERSTITIAL [None]
  - NOCTURIA [None]
  - RENAL FAILURE ACUTE [None]
